FAERS Safety Report 18989605 (Version 2)
Quarter: 2021Q1

REPORT INFORMATION
  Report Type: Report from Study
  Country: US (occurrence: US)
  Receive Date: 20210310
  Receipt Date: 20210319
  Transmission Date: 20210420
  Serious: Yes (Other)
  Sender: FDA-Public Use
  Company Number: US-EMD SERONO-E2B_90021313

PATIENT
  Age: 53 Year
  Sex: Female

DRUGS (3)
  1. REBIF [Suspect]
     Active Substance: INTERFERON BETA-1A
     Dosage: REBIDOSE
     Route: 058
     Dates: start: 20170330, end: 201706
  2. REBIF [Suspect]
     Active Substance: INTERFERON BETA-1A
     Dosage: REBIF PREFILLED SYRINGE
     Route: 058
  3. REBIF [Suspect]
     Active Substance: INTERFERON BETA-1A
     Indication: MULTIPLE SCLEROSIS
     Dosage: REBIDOSE
     Route: 058
     Dates: start: 20131029, end: 20160501

REACTIONS (15)
  - Nephrolithiasis [Recovered/Resolved]
  - Hyperhidrosis [Unknown]
  - Thirst [Unknown]
  - Dry mouth [Unknown]
  - Memory impairment [Unknown]
  - Pulmonary embolism [Unknown]
  - Product dispensing issue [Not Recovered/Not Resolved]
  - Feeling hot [Unknown]
  - Injection site bruising [Unknown]
  - Uterine leiomyoma [Unknown]
  - Erythema [Unknown]
  - Influenza like illness [Unknown]
  - Injection site erythema [Unknown]
  - Tongue dry [Not Recovered/Not Resolved]
  - Product dose omission issue [Not Recovered/Not Resolved]

NARRATIVE: CASE EVENT DATE: 202102
